FAERS Safety Report 8382104-4 (Version None)
Quarter: 2012Q1

REPORT INFORMATION
  Report Type: 
  Country: None (occurrence: None)
  Receive Date: 20120323
  Receipt Date: 20110906
  Transmission Date: 20120608
  Serious: Yes (Hospitalization, Other)
  Sender: FDA-Public Use
  Company Number: 163-21880-11051772

PATIENT
  Age: 76 Year
  Sex: Female
  Weight: 67.1324 kg

DRUGS (2)
  1. REVLIMID [Suspect]
     Indication: REFRACTORY ANAEMIA
     Dosage: 10 MG, DAILY X 14 DAYS, PO ; 5 MG, 1 IN 1 D, PO
     Route: 048
     Dates: start: 20060831, end: 20060921
  2. REVLIMID [Suspect]
     Indication: REFRACTORY ANAEMIA
     Dosage: 10 MG, DAILY X 14 DAYS, PO ; 5 MG, 1 IN 1 D, PO
     Route: 048
     Dates: start: 20110501

REACTIONS (2)
  - PNEUMONIA [None]
  - PANCYTOPENIA [None]
